FAERS Safety Report 17768777 (Version 1)
Quarter: 2020Q2

REPORT INFORMATION
  Report Type: Spontaneous
  Country: FR (occurrence: FR)
  Receive Date: 20200512
  Receipt Date: 20200512
  Transmission Date: 20200714
  Serious: Yes (Death, Hospitalization)
  Sender: FDA-Public Use
  Company Number: FR-ABBVIE-20K-056-3344668-00

PATIENT
  Age: 5 Year
  Sex: Male

DRUGS (4)
  1. VENCLYXTO [Suspect]
     Active Substance: VENETOCLAX
     Indication: PRODUCT USED FOR UNKNOWN INDICATION
     Dosage: DAY 0 TO DAY 2
     Route: 048
  2. VENCLYXTO [Suspect]
     Active Substance: VENETOCLAX
     Dosage: DAY 3 TO DAY 5
     Route: 048
  3. VENCLYXTO [Suspect]
     Active Substance: VENETOCLAX
     Dosage: DAY 9 TO DAY 23
     Route: 048
  4. VENCLYXTO [Suspect]
     Active Substance: VENETOCLAX
     Dosage: DAY 6
     Route: 048

REACTIONS (3)
  - Death [Fatal]
  - Hospitalisation [Unknown]
  - Off label use [Unknown]

NARRATIVE: CASE EVENT DATE: 2020
